FAERS Safety Report 14231445 (Version 2)
Quarter: 2017Q4

REPORT INFORMATION
  Report Type: Spontaneous
  Country: US (occurrence: US)
  Receive Date: 20171128
  Receipt Date: 20171212
  Transmission Date: 20180321
  Serious: No
  Sender: FDA-Public Use
  Company Number: US-JNJFOC-20171004261

PATIENT
  Age: 8 Decade
  Sex: Female

DRUGS (13)
  1. IRON [Concomitant]
     Active Substance: IRON
     Indication: BLOOD IRON DECREASED
     Route: 065
  2. COQ 10 [Concomitant]
     Active Substance: UBIDECARENONE
     Indication: ROUTINE HEALTH MAINTENANCE
     Route: 065
  3. FISH OIL [Concomitant]
     Active Substance: FISH OIL
     Indication: ROUTINE HEALTH MAINTENANCE
     Route: 065
  4. WOMENS ROGAINE UNSCENTED [Suspect]
     Active Substance: MINOXIDIL
     Indication: ALOPECIA
     Route: 061
  5. WOMENS ROGAINE UNSCENTED [Suspect]
     Active Substance: MINOXIDIL
     Indication: ALOPECIA
     Route: 061
     Dates: start: 20171003
  6. VITAMIN E [Concomitant]
     Active Substance: .ALPHA.-TOCOPHEROL
     Indication: ROUTINE HEALTH MAINTENANCE
     Route: 065
  7. CALCIUM 600 PLUS VITAMIN D [Concomitant]
     Active Substance: CALCIUM CARBONATE\VITAMIN D
     Indication: ROUTINE HEALTH MAINTENANCE
     Route: 065
  8. TRIAMTERENE AND HYDROCHLOROTHIAZIDE [Concomitant]
     Active Substance: HYDROCHLOROTHIAZIDE\TRIAMTERENE
     Indication: HEART RATE INCREASED
     Route: 065
  9. VITAMIN B12 [Concomitant]
     Active Substance: CYANOCOBALAMIN
     Indication: ROUTINE HEALTH MAINTENANCE
     Route: 065
  10. CRANBERRY. [Concomitant]
     Active Substance: CRANBERRY
     Indication: ROUTINE HEALTH MAINTENANCE
     Route: 065
  11. VITAMINE C [Concomitant]
     Active Substance: ASCORBIC ACID
     Indication: ROUTINE HEALTH MAINTENANCE
     Route: 065
  12. BABY ASPIRIN [Concomitant]
     Active Substance: ASPIRIN
     Indication: COAGULOPATHY
     Route: 065
  13. POTASSIUM [Concomitant]
     Active Substance: POTASSIUM
     Indication: ROUTINE HEALTH MAINTENANCE
     Route: 065

REACTIONS (6)
  - Product use in unapproved indication [Not Recovered/Not Resolved]
  - Skin irritation [Recovered/Resolved]
  - Alopecia [Not Recovered/Not Resolved]
  - Nail discolouration [Recovered/Resolved]
  - Off label use [Not Recovered/Not Resolved]
  - Incorrect dose administered [Unknown]
